FAERS Safety Report 9744273 (Version 1)
Quarter: 2013Q4

REPORT INFORMATION
  Report Type: Spontaneous
  Country: US (occurrence: US)
  Receive Date: 20131210
  Receipt Date: 20131210
  Transmission Date: 20140711
  Serious: No
  Sender: FDA-Public Use
  Company Number: US-BIOGENIDEC-2013BI102163

PATIENT
  Sex: Female

DRUGS (8)
  1. TECFIDERA [Suspect]
     Indication: MULTIPLE SCLEROSIS
     Route: 048
  2. AMITRIPTYLINE HCL [Concomitant]
  3. ASPIRIN [Concomitant]
  4. FLOMAX [Concomitant]
  5. GABAPENTIN [Concomitant]
  6. METFORMIN HCL [Concomitant]
  7. OMEGA 3-6-9 COMPLEX [Concomitant]
  8. PRAVACHOL [Concomitant]

REACTIONS (1)
  - Burning sensation [Unknown]
